FAERS Safety Report 6582697-3 (Version None)
Quarter: 2010Q1

REPORT INFORMATION
  Report Type: 
  Country: None (occurrence: None)
  Receive Date: 20100216
  Receipt Date: 20100205
  Transmission Date: 20100710
  Serious: Yes (Hospitalization, Other)
  Sender: FDA-Public Use
  Company Number: MA-PERRIGO-10MA007031

PATIENT
  Age: 76 Year
  Sex: Female

DRUGS (8)
  1. ACETAMINOPHEN SLOW RELEASE [Suspect]
     Indication: ARTHRALGIA
     Dosage: UNKNOWN
     Route: 048
  2. CELECOXIB [Suspect]
     Indication: ARTHRALGIA
     Dosage: UNKNOWN
     Route: 048
  3. THIOCOLCHICOSIDE [Suspect]
     Indication: ARTHRALGIA
     Dosage: UNKNOWN
     Route: 048
  4. INDAPAMIDE [Concomitant]
     Indication: HYPERTENSION
  5. OMEPRAZOLE [Concomitant]
     Indication: GASTRITIS
     Dosage: 20 MG, QD
     Route: 065
  6. ACETYLSALICYLIC ACID [Concomitant]
     Indication: DRUG USE FOR UNKNOWN INDICATION
     Dosage: 100 MG, QD
     Route: 065
  7. ERGOCALCIFEROL [Concomitant]
     Indication: DRUG USE FOR UNKNOWN INDICATION
     Route: 065
  8. CALCIUM [Concomitant]
     Indication: DRUG USE FOR UNKNOWN INDICATION
     Route: 065

REACTIONS (6)
  - ANAEMIA [None]
  - INFLAMMATION [None]
  - LEUKOCYTOSIS [None]
  - RENAL FAILURE [None]
  - SEPSIS [None]
  - TOXIC EPIDERMAL NECROLYSIS [None]
